FAERS Safety Report 9162578 (Version 1)
Quarter: 2013Q1

REPORT INFORMATION
  Report Type: Spontaneous
  Country: US (occurrence: US)
  Receive Date: 20130314
  Receipt Date: 20130314
  Transmission Date: 20140127
  Serious: No
  Sender: FDA-Public Use
  Company Number: US-PFIZER INC-2013084837

PATIENT
  Age: 52 Year
  Sex: Male
  Weight: 99.77 kg

DRUGS (4)
  1. PROTONIX [Suspect]
     Indication: DYSPEPSIA
     Dosage: 40 MG, DAILY
  2. PROTONIX [Suspect]
     Indication: DYSPEPSIA
  3. PLAVIX [Concomitant]
     Indication: CARDIAC DISORDER
     Dosage: 75 MG, DAILY
  4. LEXAPRO [Concomitant]
     Dosage: UNK

REACTIONS (1)
  - Fall [Unknown]
